FAERS Safety Report 9361731 (Version 1)
Quarter: 2013Q2

REPORT INFORMATION
  Report Type: Spontaneous
  Country: KR (occurrence: KR)
  Receive Date: 20130621
  Receipt Date: 20130621
  Transmission Date: 20140414
  Serious: Yes (Death, Hospitalization, Other)
  Sender: FDA-Public Use
  Company Number: KR-CELGENEUS-286-21880-13061763

PATIENT
  Age: 47 Year
  Sex: Female

DRUGS (2)
  1. REVLIMID [Suspect]
     Indication: PLASMA CELL MYELOMA
     Route: 048
  2. DEXAMETHASONE [Concomitant]
     Indication: PLASMA CELL MYELOMA
     Dosage: HIGH DOSE
     Route: 065

REACTIONS (6)
  - Multi-organ failure [Fatal]
  - Lactic acidosis [Fatal]
  - Septic shock [Fatal]
  - Respiratory failure [Unknown]
  - Pancytopenia [Unknown]
  - Fungaemia [Unknown]
